FAERS Safety Report 7618809-X (Version None)
Quarter: 2011Q3

REPORT INFORMATION
  Report Type: 
  Country: None (occurrence: None)
  Receive Date: 20110718
  Receipt Date: 20110713
  Transmission Date: 20111222
  Serious: Yes (Death, Hospitalization, Other)
  Sender: FDA-Public Use
  Company Number: US-AMGEN-USASP2011004591

PATIENT
  Age: 74 Year
  Sex: Male

DRUGS (12)
  1. CELEBREX [Concomitant]
     Dosage: 100 MG, UNK
     Route: 048
  2. SILDENAFIL CITRATE [Concomitant]
  3. REVLIMID [Concomitant]
  4. FLEXERIL [Concomitant]
     Dosage: 5 MG, UNK
     Route: 048
  5. FERROUS SULFATE TAB [Concomitant]
     Dosage: 325 MG, UNK
     Route: 048
  6. VELCADE [Concomitant]
  7. EPOGEN [Suspect]
  8. VERAPAMIL [Concomitant]
     Dosage: 240 MG, UNK
     Route: 048
  9. TRAMADOL HCL [Concomitant]
     Dosage: 50 MG, UNK
     Route: 048
  10. NPLATE [Suspect]
     Indication: IDIOPATHIC THROMBOCYTOPENIC PURPURA
     Dosage: 225 A?G, UNK
     Dates: start: 20100915, end: 20110611
  11. MIRALAX [Concomitant]
     Dosage: 17 G, PRN
     Route: 048
  12. THALIDOMIDE [Concomitant]

REACTIONS (33)
  - SPINAL COMPRESSION FRACTURE [None]
  - ACUTE MYOCARDIAL INFARCTION [None]
  - GASTROINTESTINAL HAEMORRHAGE [None]
  - ADRENAL SUPPRESSION [None]
  - DIARRHOEA [None]
  - CONSTIPATION [None]
  - SEPSIS [None]
  - PNEUMONIA [None]
  - CARDIOGENIC SHOCK [None]
  - ANAEMIA [None]
  - FUNGAL INFECTION [None]
  - INTERSTITIAL LUNG DISEASE [None]
  - SYSTEMIC INFLAMMATORY RESPONSE SYNDROME [None]
  - PNEUMOCYSTIS JIROVECI PNEUMONIA [None]
  - RADIATION PNEUMONITIS [None]
  - CARDIAC FAILURE CONGESTIVE [None]
  - EPISTAXIS [None]
  - ORGAN FAILURE [None]
  - NEUTROPENIA [None]
  - ELECTROLYTE IMBALANCE [None]
  - COUGH [None]
  - PLATELET COUNT DECREASED [None]
  - GASTRITIS [None]
  - LACTIC ACIDOSIS [None]
  - PYREXIA [None]
  - HYPOXIA [None]
  - MULTIPLE MYELOMA [None]
  - RENAL FAILURE ACUTE [None]
  - THERAPEUTIC RESPONSE DECREASED [None]
  - THROMBOCYTOPENIA [None]
  - PNEUMONIA ASPIRATION [None]
  - ACUTE RESPIRATORY DISTRESS SYNDROME [None]
  - HYPERGLYCAEMIA [None]
